FAERS Safety Report 16164864 (Version 1)
Quarter: 2019Q2

REPORT INFORMATION
  Report Type: Spontaneous
  Country: US (occurrence: US)
  Receive Date: 20190405
  Receipt Date: 20190405
  Transmission Date: 20190711
  Serious: No
  Sender: FDA-Public Use
  Company Number: US-TEVA-2019-US-1024444

PATIENT
  Sex: Female
  Weight: 59 kg

DRUGS (2)
  1. QVAR [Suspect]
     Active Substance: BECLOMETHASONE DIPROPIONATE
     Indication: ASTHMA
     Dosage: STARTED SEVERAL YEARS AGO
     Route: 055
  2. LEVALBUTEROL. [Concomitant]
     Active Substance: LEVALBUTEROL
     Indication: ASTHMA
     Route: 065

REACTIONS (6)
  - Product administration interrupted [Unknown]
  - Asthma [Recovering/Resolving]
  - Visual acuity reduced [Unknown]
  - Emergency care [Unknown]
  - Intentional product use issue [Unknown]
  - Dyspnoea [Recovered/Resolved]

NARRATIVE: CASE EVENT DATE: 2017
